FAERS Safety Report 10657744 (Version 1)
Quarter: 2014Q4

REPORT INFORMATION
  Report Type: Spontaneous
  Country: US (occurrence: None)
  Receive Date: 20141215
  Receipt Date: 20141215
  Transmission Date: 20150529
  Serious: Yes (Hospitalization)
  Sender: FDA-Public Use
  Company Number: US-H14001-14-01791

PATIENT
  Age: 8 Year
  Sex: Male

DRUGS (4)
  1. PHENYTOIN. [Suspect]
     Active Substance: PHENYTOIN
     Indication: SEIZURE
  2. VANCOMYCIN [Concomitant]
     Active Substance: VANCOMYCIN
  3. CEFTRIAXONE. [Concomitant]
     Active Substance: CEFTRIAXONE
  4. DOPAMINE [Concomitant]
     Active Substance: DOPAMINE\DOPAMINE HYDROCHLORIDE

REACTIONS (10)
  - Tachycardia [None]
  - Sepsis [None]
  - Pharyngeal erythema [None]
  - Rash erythematous [None]
  - Hypotension [None]
  - Lymphadenopathy [None]
  - Rash maculo-papular [None]
  - Drug reaction with eosinophilia and systemic symptoms [None]
  - Pyrexia [None]
  - Rash pruritic [None]
